FAERS Safety Report 5007357-1 (Version None)
Quarter: 2006Q2

REPORT INFORMATION
  Report Type: 
  Country: None (occurrence: None)
  Receive Date: 20060519
  Receipt Date: 20060519
  Transmission Date: 20061013
  Serious: Yes (Other)
  Sender: FDA-Public Use
  Company Number: None

PATIENT
  Sex: Male
  Weight: 76.2043 kg

DRUGS (1)
  1. EZETIMIBE/SIMVASTATIN 5/40MG (MERCK) [Suspect]
     Indication: BLOOD CHOLESTEROL
     Dosage: 5/40  AT BEDTIME PO
     Route: 048
     Dates: start: 20050823, end: 20051027

REACTIONS (1)
  - BLOOD CREATINE PHOSPHOKINASE INCREASED [None]
